FAERS Safety Report 15368090 (Version 1)
Quarter: 2018Q4

REPORT INFORMATION
  Report Type: Spontaneous
  Country: CN (occurrence: CN)
  Receive Date: 20180910
  Receipt Date: 20180910
  Transmission Date: 20190204
  Serious: Yes (Hospitalization)
  Sender: FDA-Public Use
  Company Number: CN-SA-2018SA174048

PATIENT
  Age: 68 Year
  Sex: Male

DRUGS (6)
  1. GLYCYRRHIZA GLABRA ROOT [Suspect]
     Active Substance: HERBALS\GLYCYRRHIZA GLABRA
     Indication: NASOPHARYNGITIS
     Dosage: 4 DF, QD
  2. SIMVASTATIN. [Suspect]
     Active Substance: SIMVASTATIN
     Dosage: 20 MG PER NIGHT
  3. METOPROLOL TARTRATE. [Suspect]
     Active Substance: METOPROLOL TARTRATE
     Indication: HYPERTENSION
     Dosage: 25 MG, QD
  4. METFORMIN HYDROCHLORIDE. [Suspect]
     Active Substance: METFORMIN HYDROCHLORIDE
     Indication: DIABETES MELLITUS
     Route: 048
  5. HYDROCHLOROTHIAZIDE/IRBESARTAN [Suspect]
     Active Substance: HYDROCHLOROTHIAZIDE\IRBESARTAN
     Indication: HYPERTENSION
     Dosage: IRBESARTAN 150 MG OR HYDROCHLOROTHIAZIDE 12.5 MG PER DAY
  6. ZINC. [Suspect]
     Active Substance: ZINC

REACTIONS (10)
  - Hyperlipidaemia [Unknown]
  - Hypokalaemia [Recovered/Resolved]
  - Metabolic alkalosis [Unknown]
  - Acute coronary syndrome [Recovered/Resolved]
  - Fatigue [Unknown]
  - Palpitations [Unknown]
  - Rhabdomyolysis [Unknown]
  - Electrocardiogram QT prolonged [Recovered/Resolved]
  - Renal disorder [Unknown]
  - Blood creatine phosphokinase increased [Recovered/Resolved]
